FAERS Safety Report 13381123 (Version 1)
Quarter: 2017Q1

REPORT INFORMATION
  Report Type: Spontaneous
  Country: US (occurrence: US)
  Receive Date: 20170328
  Receipt Date: 20170328
  Transmission Date: 20170429
  Serious: No
  Sender: FDA-Public Use
  Company Number: None

PATIENT

DRUGS (1)
  1. VENLAFAXINE XR 75 MG [Suspect]
     Active Substance: VENLAFAXINE HYDROCHLORIDE
     Indication: PRODUCT USED FOR UNKNOWN INDICATION
     Dosage: 3 PER DAY  MOUTH
     Route: 048
     Dates: start: 20160122

REACTIONS (2)
  - Dry mouth [None]
  - Dental caries [None]

NARRATIVE: CASE EVENT DATE: 20160510
